FAERS Safety Report 9156263 (Version 1)
Quarter: 2013Q1

REPORT INFORMATION
  Report Type: Spontaneous
  Country: US (occurrence: US)
  Receive Date: 20130115
  Receipt Date: 20130115
  Transmission Date: 20140127
  Serious: Yes (Other)
  Sender: FDA-Public Use
  Company Number: US-RB-048586-13

PATIENT
  Age: 54 Year
  Sex: Female

DRUGS (2)
  1. MUCINEX FAST MAX ADULT DM (DEXTROMETHORPHAN HYDROBROMIDE) [Suspect]
     Indication: PRODUCT USED FOR UNKNOWN INDICATION
     Route: 048
     Dates: start: 20121228
  2. MUCINEX FAST MAX ADULT DM (GUAIFENESIN) [Suspect]

REACTIONS (1)
  - Haemoptysis [Recovered/Resolved]
